FAERS Safety Report 21003573 (Version 1)
Quarter: 2022Q2

REPORT INFORMATION
  Report Type: Spontaneous
  Country: GB (occurrence: GB)
  Receive Date: 20220624
  Receipt Date: 20220624
  Transmission Date: 20220721
  Serious: Yes (Other)
  Sender: FDA-Public Use
  Company Number: GB-MHRA-MED-202206211133413190-CWMSH

PATIENT
  Sex: Female

DRUGS (1)
  1. MEDROXYPROGESTERONE\MEDROXYPROGESTERONE ACETATE [Suspect]
     Active Substance: MEDROXYPROGESTERONE\MEDROXYPROGESTERONE ACETATE
     Indication: Contraception
     Dosage: 104MG/0.65ML
     Dates: start: 20210723, end: 20220621

REACTIONS (1)
  - Lipoatrophy [Not Recovered/Not Resolved]

NARRATIVE: CASE EVENT DATE: 20211101
